FAERS Safety Report 9643903 (Version 1)
Quarter: 2013Q4

REPORT INFORMATION
  Report Type: Other
  Country: US (occurrence: US)
  Receive Date: 20131024
  Receipt Date: 20131024
  Transmission Date: 20140711
  Serious: Yes (Hospitalization, Other)
  Sender: FDA-Public Use
  Company Number: US-FRI-1000050397

PATIENT
  Age: 3 Year
  Sex: Male
  Weight: 18 kg

DRUGS (1)
  1. VILAZODONE [Suspect]
     Dosage: 280 MG

REACTIONS (3)
  - Grand mal convulsion [Recovered/Resolved]
  - Accidental exposure to product [Recovered/Resolved]
  - Pneumonia aspiration [Recovered/Resolved]
